FAERS Safety Report 6160575-1 (Version None)
Quarter: 2009Q2

REPORT INFORMATION
  Report Type: 
  Country: None (occurrence: None)
  Receive Date: 20090420
  Receipt Date: 20090408
  Transmission Date: 20091009
  Serious: Yes (Other)
  Sender: FDA-Public Use
  Company Number: US-PFIZER INC-2006078852

PATIENT
  Sex: Female
  Weight: 73.9 kg

DRUGS (4)
  1. PROVERA [Suspect]
     Indication: HORMONE REPLACEMENT THERAPY
     Dosage: 0.5 MG, UNK
     Route: 048
     Dates: start: 19870101, end: 19950101
  2. PREMARIN [Suspect]
     Indication: HORMONE REPLACEMENT THERAPY
     Dosage: 0.625 MG, UNK
     Route: 065
     Dates: start: 19870101, end: 20040601
  3. PREMARIN [Suspect]
     Indication: ANXIETY
  4. COUMADIN [Concomitant]
     Indication: THROMBOSIS
     Dosage: UNK
     Dates: start: 20040101, end: 20051201

REACTIONS (1)
  - OVARIAN EPITHELIAL CANCER [None]
